FAERS Safety Report 18668412 (Version 1)
Quarter: 2020Q4

REPORT INFORMATION
  Report Type: Spontaneous
  Country: US (occurrence: US)
  Receive Date: 20201224
  Receipt Date: 20201224
  Transmission Date: 20210114
  Serious: Yes (Other)
  Sender: FDA-Public Use
  Company Number: None

PATIENT
  Age: 60 Year
  Sex: Female
  Weight: 67.5 kg

DRUGS (9)
  1. LEVOTHYROXINE. [Concomitant]
     Active Substance: LEVOTHYROXINE
  2. MAGNESIUM [Concomitant]
     Active Substance: MAGNESIUM
  3. ESTRADIOL TRANSDERMAL SYSTEM [Concomitant]
     Active Substance: ESTRADIOL
  4. VITAMIN D [Concomitant]
     Active Substance: VITAMIN D NOS
  5. AJOVY [Suspect]
     Active Substance: FREMANEZUMAB-VFRM
     Indication: MIGRAINE
     Dosage: ?          QUANTITY:1 INJECTION(S);OTHER FREQUENCY:EVERY 4 WEEKS;?
     Route: 058
     Dates: start: 20190227, end: 20190919
  6. TOPICAL DHEA [Concomitant]
  7. EMGALITY [Suspect]
     Active Substance: GALCANEZUMAB-GNLM
     Indication: MIGRAINE
     Dosage: ?          QUANTITY:1 INJECTION(S);?
     Route: 058
     Dates: start: 20201026, end: 20201026
  8. CRANBERRY EXTRACT [Concomitant]
     Active Substance: CRANBERRY
  9. BUPROPION. [Concomitant]
     Active Substance: BUPROPION

REACTIONS (6)
  - Tachypnoea [None]
  - Respiratory alkalosis [None]
  - Sinus bradycardia [None]
  - Weight increased [None]
  - Pulmonary function test abnormal [None]
  - Dyspnoea [None]

NARRATIVE: CASE EVENT DATE: 20201103
